FAERS Safety Report 16023896 (Version 5)
Quarter: 2019Q3

REPORT INFORMATION
  Report Type: Spontaneous
  Country: JP (occurrence: JP)
  Receive Date: 20190301
  Receipt Date: 20190820
  Transmission Date: 20191004
  Serious: Yes (Life-Threatening, Hospitalization, Other)
  Sender: FDA-Public Use
  Company Number: JP-009507513-1902JPN001977J

PATIENT
  Age: 62 Year
  Sex: Male
  Weight: 63 kg

DRUGS (9)
  1. TAKECAB [Concomitant]
     Active Substance: VONOPRAZAN FUMURATE
     Dosage: 20 MILLIGRAM, QD
     Route: 048
  2. MOHRUS TAPE L [Concomitant]
     Active Substance: KETOPROFEN
     Dosage: UNK
     Route: 003
  3. NAIXAN [Concomitant]
     Active Substance: NAPROXEN SODIUM
     Dosage: 100 MILLIGRAM, TID
     Route: 048
  4. CALONAL [Concomitant]
     Active Substance: ACETAMINOPHEN
     Dosage: 3 DOSAGE FORM, PRN
     Route: 048
  5. KEYTRUDA [Suspect]
     Active Substance: PEMBROLIZUMAB
     Indication: NON-SMALL CELL LUNG CANCER
     Dosage: 200 MILLIGRAM, Q3W
     Route: 041
     Dates: start: 20181207, end: 20190208
  6. POLAPREZINC OD [Concomitant]
     Dosage: 75 MILLIGRAM, BID
     Route: 048
  7. CANDESARTAN. [Concomitant]
     Active Substance: CANDESARTAN
     Dosage: 4 MILLIGRAM, QD
     Route: 048
  8. PRIMPERAN [Concomitant]
     Active Substance: METOCLOPRAMIDE HYDROCHLORIDE
     Dosage: 1 DOSAGE FORM, PRN
     Route: 048
  9. HIRUDOID [Concomitant]
     Active Substance: GLYCOSAMINOGLYCANS
     Dosage: UNK, BID
     Route: 003

REACTIONS (3)
  - Pneumonia pneumococcal [Recovered/Resolved]
  - Bone marrow failure [Recovering/Resolving]
  - Malignant neoplasm progression [Not Recovered/Not Resolved]

NARRATIVE: CASE EVENT DATE: 20190209
